FAERS Safety Report 12556369 (Version 1)
Quarter: 2016Q3

REPORT INFORMATION
  Report Type: Spontaneous
  Country: US (occurrence: None)
  Receive Date: 20160713
  Receipt Date: 20160713
  Transmission Date: 20161109
  Serious: Yes (Other)
  Sender: FDA-Public Use
  Company Number: None

PATIENT
  Sex: Male
  Weight: 81.65 kg

DRUGS (23)
  1. ABILIFY [Suspect]
     Active Substance: ARIPIPRAZOLE
     Indication: SLEEP DISORDER
     Dosage: 1 PILL DAILY ONCE MOUTH
     Route: 048
     Dates: start: 2004, end: 201509
  2. GINGER. [Concomitant]
     Active Substance: GINGER
  3. ALDMINES [Concomitant]
  4. PROBIOTICS [Concomitant]
     Active Substance: PROBIOTICS NOS
  5. BIOFLAVNOIDS COMPLEX [Concomitant]
  6. CAYENNE PEPPER [Concomitant]
     Active Substance: CAPSICUM
  7. GALA [Concomitant]
  8. AMINO ACIDS ABCDE [Concomitant]
  9. DGL [Concomitant]
  10. SAMBUCUS NIGRA FLOWERING TOP\ZINC GLUCONATE\ZINC OXIDE [Concomitant]
     Active Substance: SAMBUCUS NIGRA FLOWERING TOP\ZINC GLUCONATE\ZINC OXIDE
  11. CILENTARO [Concomitant]
  12. APPLE CIDER [Concomitant]
  13. TUMERIC [Concomitant]
     Active Substance: TURMERIC
  14. PEPPERMINT. [Concomitant]
     Active Substance: PEPPERMINT
  15. GARLIC. [Concomitant]
     Active Substance: GARLIC
  16. TRACE MINERALS [Concomitant]
  17. EPA [Concomitant]
  18. MELATONIN [Concomitant]
     Active Substance: MELATONIN
  19. FIBER [Concomitant]
     Active Substance: PSYLLIUM HUSK
  20. WORMWOOD [Concomitant]
     Active Substance: WORMWOOD
  21. DHA [Concomitant]
     Active Substance: DIETARY SUPPLEMENT
  22. MAG L THEAMINE [Concomitant]
  23. DIGESTIVE ENZYMES [Concomitant]
     Active Substance: UNSPECIFIED INGREDIENT

REACTIONS (10)
  - Weight increased [None]
  - Haematemesis [None]
  - Helicobacter infection [None]
  - Testicular disorder [None]
  - Blood cholesterol increased [None]
  - Swelling [None]
  - Hypertension [None]
  - Haematochezia [None]
  - Gingival bleeding [None]
  - Constipation [None]

NARRATIVE: CASE EVENT DATE: 2010
